FAERS Safety Report 14779967 (Version 1)
Quarter: 2018Q2

REPORT INFORMATION
  Report Type: Spontaneous
  Country: IT (occurrence: IT)
  Receive Date: 20180419
  Receipt Date: 20180419
  Transmission Date: 20180711
  Serious: Yes (Hospitalization)
  Sender: FDA-Public Use
  Company Number: IT-BAUSCH-BL-2018-011313

PATIENT
  Age: 57 Year
  Sex: Female

DRUGS (9)
  1. OXALIPLATIN. [Suspect]
     Active Substance: OXALIPLATIN
     Dosage: INTRAVENOUS INFUSION?EVERY CYCLE
     Route: 040
     Dates: start: 20150923, end: 20150923
  2. METRONIDAZOLE. [Suspect]
     Active Substance: METRONIDAZOLE
     Indication: ABDOMINAL DISTENSION
  3. FLUOROURACIL. [Suspect]
     Active Substance: FLUOROURACIL
     Indication: ADENOCARCINOMA OF COLON
     Dosage: 400 MG/M2 IN A BOLUS IN TWO HOURS FOLLOWED BY 600 MG/M2 CONTINUOUS INFUSION IN 22 HOURS A DAY 1-2
     Route: 040
     Dates: start: 20150812, end: 20150812
  4. OXALIPLATIN. [Suspect]
     Active Substance: OXALIPLATIN
     Indication: ADENOCARCINOMA OF COLON
     Dosage: INTRAVENOUS INFUSION?EVERY CYCLE
     Route: 040
     Dates: start: 20150812, end: 20150812
  5. FLUOROURACIL. [Suspect]
     Active Substance: FLUOROURACIL
     Route: 065
     Dates: start: 20150923, end: 20150923
  6. CETUXIMAB. [Concomitant]
     Active Substance: CETUXIMAB
     Indication: ADENOCARCINOMA OF COLON
     Dates: start: 20150909
  7. METRONIDAZOLE. [Suspect]
     Active Substance: METRONIDAZOLE
     Indication: ABDOMINAL PAIN
     Route: 065
  8. FOLINIC ACID [Suspect]
     Active Substance: LEUCOVORIN
     Indication: ADENOCARCINOMA OF COLON
     Dosage: EVERY CYCLE
     Route: 065
     Dates: start: 20150812, end: 20150812
  9. FOLINIC ACID [Suspect]
     Active Substance: LEUCOVORIN
     Dosage: EVERY CYCLE
     Route: 065
     Dates: start: 20150923, end: 20150923

REACTIONS (1)
  - Atypical haemolytic uraemic syndrome [Recovered/Resolved]

NARRATIVE: CASE EVENT DATE: 20151015
